FAERS Safety Report 7103627-1 (Version None)
Quarter: 2010Q4

REPORT INFORMATION
  Report Type: 
  Country: None (occurrence: None)
  Receive Date: 20101115
  Receipt Date: 20101108
  Transmission Date: 20110411
  Serious: Yes (Other)
  Sender: FDA-Public Use
  Company Number: US-AMGEN AB-QUU438082

PATIENT

DRUGS (3)
  1. NPLATE [Suspect]
     Indication: IDIOPATHIC THROMBOCYTOPENIC PURPURA
     Dosage: 250 A?G, QWK
     Route: 058
     Dates: start: 20091009
  2. AZATHIOPRINE [Concomitant]
     Dosage: UNK UNK, UNK
     Dates: start: 20090821
  3. DEXAMETHASONE [Concomitant]
     Dosage: 12 MG, UNK
     Dates: start: 20100325

REACTIONS (4)
  - EPISTAXIS [None]
  - PLATELET COUNT DECREASED [None]
  - RASH [None]
  - THERAPEUTIC RESPONSE DECREASED [None]
